FAERS Safety Report 5387655-2 (Version None)
Quarter: 2007Q3

REPORT INFORMATION
  Report Type: 
  Country: None (occurrence: None)
  Receive Date: 20070712
  Receipt Date: 20070712
  Transmission Date: 20080115
  Serious: Yes (Hospitalization)
  Sender: FDA-Public Use
  Company Number: None

PATIENT
  Age: 66 Year
  Sex: Male
  Weight: 89.3 kg

DRUGS (1)
  1. SUTENT [Suspect]
     Indication: GLIOBLASTOMA MULTIFORME
     Dosage: 50 MG DAILY X 28 DAYS  REST X 14 DAYS PO
     Route: 048
     Dates: start: 20070606, end: 20070703

REACTIONS (4)
  - ABDOMINAL PAIN [None]
  - GALLBLADDER DISORDER [None]
  - LIVER DISORDER [None]
  - ULTRASOUND BILIARY TRACT ABNORMAL [None]
